FAERS Safety Report 7291275-2 (Version None)
Quarter: 2011Q1

REPORT INFORMATION
  Report Type: 
  Country: None (occurrence: None)
  Receive Date: 20110214
  Receipt Date: 20110202
  Transmission Date: 20110831
  Serious: Yes (Other)
  Sender: FDA-Public Use
  Company Number: US-MYLANLABS-2011S1002256

PATIENT
  Sex: Female

DRUGS (6)
  1. ESTRADIOL [Suspect]
     Indication: HORMONE REPLACEMENT THERAPY
     Dosage: CHANGED QW
     Route: 062
  2. MOBIC [Concomitant]
  3. LEVOTHYROXINE SODIUM [Concomitant]
     Indication: HYPOTHYROIDISM
  4. CRESTOR [Concomitant]
  5. XANAX [Concomitant]
  6. EPITOL [Concomitant]
     Dates: start: 20100101

REACTIONS (6)
  - DRUG INEFFECTIVE [None]
  - APPLICATION SITE ERYTHEMA [None]
  - TREMOR [None]
  - SUICIDAL IDEATION [None]
  - THINKING ABNORMAL [None]
  - DISTURBANCE IN ATTENTION [None]
